FAERS Safety Report 4609850-X (Version None)
Quarter: 2005Q1

REPORT INFORMATION
  Report Type: 
  Country: None (occurrence: None)
  Receive Date: 20050316
  Receipt Date: 20050310
  Transmission Date: 20050727
  Serious: Yes (Hospitalization)
  Sender: FDA-Public Use
  Company Number: GB-BRISTOL-MYERS SQUIBB COMPANY-12892485

PATIENT
  Age: 61 Year
  Sex: Female
  Weight: 57 kg

DRUGS (6)
  1. CYCLOPHOSPHAMIDE [Suspect]
     Indication: BREAST CANCER
     Dates: start: 20050128, end: 20050128
  2. PACLITAXEL [Suspect]
     Indication: BREAST CANCER
     Dates: start: 20050219, end: 20050219
  3. EPIRUBICIN [Suspect]
     Indication: BREAST CANCER
     Dates: start: 20050128, end: 20050128
  4. GEMCITABINE [Suspect]
     Indication: BREAST CANCER
     Dates: start: 20050226, end: 20050226
  5. AMITRIPTYLINE HCL [Concomitant]
     Route: 048
     Dates: start: 20020101
  6. DIHYDROCODEINE [Concomitant]
     Route: 048
     Dates: start: 20000101

REACTIONS (3)
  - NEUTROPENIA [None]
  - PHARYNGOLARYNGEAL PAIN [None]
  - RASH [None]
